FAERS Safety Report 16100858 (Version 1)
Quarter: 2019Q1

REPORT INFORMATION
  Report Type: Spontaneous
  Country: US (occurrence: US)
  Receive Date: 20190219
  Receipt Date: 20190219
  Transmission Date: 20190418
  Serious: No
  Sender: FDA-Public Use
  Company Number: None

PATIENT
  Age: 90 Year
  Sex: Female
  Weight: 49.9 kg

DRUGS (3)
  1. FORTEO [Suspect]
     Active Substance: TERIPARATIDE
     Indication: OSTEOPOROSIS
     Route: 058
     Dates: start: 201705
  2. FORTEO [Suspect]
     Active Substance: TERIPARATIDE
     Indication: FEMORAL NECK FRACTURE
     Route: 058
     Dates: start: 201705
  3. FORTEO [Suspect]
     Active Substance: TERIPARATIDE
     Indication: FEMORAL NECK FRACTURE

REACTIONS (1)
  - Coronary arterial stent insertion [None]
